FAERS Safety Report 16225526 (Version 1)
Quarter: 2019Q2

REPORT INFORMATION
  Report Type: Report from Study
  Country: US (occurrence: US)
  Receive Date: 20190422
  Receipt Date: 20190422
  Transmission Date: 20190711
  Serious: Yes (Other)
  Sender: FDA-Public Use
  Company Number: US-GILEAD-2019-0403686

PATIENT
  Age: 57 Year
  Sex: Female

DRUGS (10)
  1. HEMOCYTE [Concomitant]
  2. MESALAMINE. [Concomitant]
     Active Substance: MESALAMINE
  3. MYCOPHENOLATE [Concomitant]
     Active Substance: MYCOPHENOLIC ACID
  4. OMEPRAZOLE. [Concomitant]
     Active Substance: OMEPRAZOLE
  5. ADCIRCA [Concomitant]
     Active Substance: TADALAFIL
  6. DILTIAZEM. [Concomitant]
     Active Substance: DILTIAZEM
  7. VENTAVIS [Concomitant]
     Active Substance: ILOPROST
  8. DOXEPIN [Concomitant]
     Active Substance: DOXEPIN
  9. SUCRALFATE. [Concomitant]
     Active Substance: SUCRALFATE
  10. AMBRISENTAN [Suspect]
     Active Substance: AMBRISENTAN
     Indication: PULMONARY HYPERTENSION
     Dosage: 5 MG, QD
     Route: 065
     Dates: start: 20181130

REACTIONS (1)
  - Skin cancer [Unknown]

NARRATIVE: CASE EVENT DATE: 201902
